FAERS Safety Report 21897906 (Version 2)
Quarter: 2023Q4

REPORT INFORMATION
  Report Type: Spontaneous
  Country: US (occurrence: US)
  Receive Date: 20230123
  Receipt Date: 20231026
  Transmission Date: 20240109
  Serious: No
  Sender: FDA-Public Use
  Company Number: US-PFIZER INC-202300031069

PATIENT
  Age: 77 Year
  Sex: Female

DRUGS (1)
  1. CIBINQO [Suspect]
     Active Substance: ABROCITINIB
     Indication: Eczema
     Dosage: 100 MG

REACTIONS (5)
  - Drug ineffective [Unknown]
  - Feeling drunk [Unknown]
  - Dizziness [Unknown]
  - Vaginal disorder [Unknown]
  - Product prescribing error [Unknown]
